FAERS Safety Report 4916231-8 (Version None)
Quarter: 2006Q1

REPORT INFORMATION
  Report Type: 
  Country: None (occurrence: None)
  Receive Date: 20060113
  Receipt Date: 20051027
  Transmission Date: 20060701
  Serious: No
  Sender: FDA-Public Use
  Company Number: 2005SP003731

PATIENT
  Age: 62 Year
  Sex: Female
  Weight: 64.8644 kg

DRUGS (6)
  1. LUNESTA [Suspect]
     Indication: INSOMNIA
     Dosage: 3 MG;HS;ORAL
     Route: 048
     Dates: start: 20051026, end: 20051026
  2. MULTIVITAMIN [Concomitant]
  3. ANTIOXIDANT [Concomitant]
  4. CALCIUM GLUCONATE [Concomitant]
  5. CYTOMEL [Concomitant]
  6. AMBIEN [Concomitant]

REACTIONS (1)
  - DYSGEUSIA [None]
